FAERS Safety Report 6919750-8 (Version None)
Quarter: 2010Q3

REPORT INFORMATION
  Report Type: 
  Country: None (occurrence: None)
  Receive Date: 20100810
  Receipt Date: 20100810
  Transmission Date: 20110219
  Serious: Yes (Other)
  Sender: FDA-Public Use
  Company Number: None

PATIENT
  Sex: Female
  Weight: 50 kg

DRUGS (2)
  1. AMLODIPINE [Suspect]
     Indication: ANGINA PECTORIS
     Dosage: 5 MG BID PO (OVER THREE YEARS)
     Route: 048
  2. AMLODIPINE [Suspect]
     Indication: HYPERTENSION
     Dosage: 5 MG BID PO (OVER THREE YEARS)
     Route: 048

REACTIONS (7)
  - BLOOD PRESSURE INADEQUATELY CONTROLLED [None]
  - BLOOD PRESSURE SYSTOLIC INCREASED [None]
  - DIZZINESS [None]
  - FATIGUE [None]
  - MALAISE [None]
  - PRODUCT SUBSTITUTION ISSUE [None]
  - TREMOR [None]
